FAERS Safety Report 9643818 (Version 1)
Quarter: 2013Q4

REPORT INFORMATION
  Report Type: Spontaneous
  Country: GB (occurrence: GB)
  Receive Date: 20131024
  Receipt Date: 20131024
  Transmission Date: 20140711
  Serious: Yes (Hospitalization)
  Sender: FDA-Public Use
  Company Number: PHFR2013GB005890

PATIENT
  Sex: Male

DRUGS (5)
  1. CLOZAPINE [Suspect]
     Indication: HALLUCINATION
     Dosage: 25 MG, UNK
  2. CLOZAPINE [Suspect]
     Indication: PSYCHOTIC DISORDER
  3. STALEVO [Concomitant]
     Indication: PARKINSON^S DISEASE
     Dosage: 0.5 DF, 5QD
  4. BOTULINUM TOXIN [Concomitant]
     Dosage: UNK
  5. DONEPEZIL [Concomitant]
     Dosage: UNK

REACTIONS (22)
  - Parkinsonism [Unknown]
  - Dementia [Unknown]
  - Communication disorder [Unknown]
  - Infection [Unknown]
  - Cognitive disorder [Unknown]
  - Unresponsive to stimuli [Unknown]
  - Malnutrition [Unknown]
  - Cachexia [Unknown]
  - Muscle atrophy [Unknown]
  - Abasia [Unknown]
  - Mobility decreased [Unknown]
  - Decubitus ulcer [Unknown]
  - Moaning [Unknown]
  - Cough [Unknown]
  - Secretion discharge [Unknown]
  - Muscle contracture [Unknown]
  - General physical health deterioration [Unknown]
  - Malaise [Unknown]
  - Catabolic state [Unknown]
  - Sepsis [Unknown]
  - Diarrhoea [Unknown]
  - Dysphagia [Unknown]
